FAERS Safety Report 4621905-2 (Version None)
Quarter: 2005Q1

REPORT INFORMATION
  Report Type: 
  Country: None (occurrence: None)
  Receive Date: 20050329
  Receipt Date: 20050103
  Transmission Date: 20050727
  Serious: Yes (Other)
  Sender: FDA-Public Use
  Company Number: SE-GLAXOSMITHKLINE-B0364019A

PATIENT
  Sex: Female

DRUGS (2)
  1. ZYBAN [Suspect]
     Indication: ILL-DEFINED DISORDER
     Route: 065
  2. THYROXINE [Suspect]
     Indication: DRUG USE FOR UNKNOWN INDICATION
     Route: 065

REACTIONS (4)
  - HYPERTHYROIDISM [None]
  - PERSONALITY CHANGE [None]
  - VISUAL ACUITY REDUCED [None]
  - VISUAL FIELD DEFECT [None]
